FAERS Safety Report 4592918-4 (Version None)
Quarter: 2005Q1

REPORT INFORMATION
  Report Type: 
  Country: None (occurrence: None)
  Receive Date: 20050228
  Receipt Date: 20050221
  Transmission Date: 20050727
  Serious: Yes (Other)
  Sender: FDA-Public Use
  Company Number: US-GLAXOSMITHKLINE-A0546513A

PATIENT
  Age: 34 Year
  Sex: Female

DRUGS (4)
  1. PAXIL CR [Suspect]
     Indication: PANIC DISORDER
     Route: 048
     Dates: start: 20040901
  2. INDERAL [Concomitant]
  3. ATIVAN [Concomitant]
     Indication: PARALYSIS
     Dosage: 1MG THREE TIMES PER DAY
  4. POTASSIUM CHLORIDE [Concomitant]

REACTIONS (6)
  - CONVULSION [None]
  - DIZZINESS [None]
  - FEELING ABNORMAL [None]
  - JOINT HYPEREXTENSION [None]
  - LOSS OF CONSCIOUSNESS [None]
  - NAUSEA [None]
